FAERS Safety Report 4990748-2 (Version None)
Quarter: 2006Q2

REPORT INFORMATION
  Report Type: 
  Country: None (occurrence: None)
  Receive Date: 20060427
  Receipt Date: 20060420
  Transmission Date: 20061013
  Serious: Yes (Life-Threatening, Hospitalization)
  Sender: FDA-Public Use
  Company Number: 222725

PATIENT
  Age: 45 Year
  Sex: Female
  Weight: 54.9 kg

DRUGS (3)
  1. AVASTIN [Suspect]
     Indication: GASTRIC CANCER
     Dosage: 859 MG, INTRAVENOUS
     Route: 042
     Dates: start: 20060110
  2. OXALIPLATIN (OXALIPLATIN) [Suspect]
     Indication: GASTRIC CANCER
     Dosage: 115 MG, INTRAVENOUS
     Route: 042
     Dates: start: 20060110
  3. DOCETAXEL (DOCETAXEL) [Suspect]
     Indication: GASTRIC CANCER
     Dosage: 107 MG, INTRAVENOUS
     Route: 042
     Dates: start: 20060110

REACTIONS (1)
  - INTESTINAL PERFORATION [None]
